FAERS Safety Report 8173519-8 (Version None)
Quarter: 2012Q1

REPORT INFORMATION
  Report Type: 
  Country: None (occurrence: None)
  Receive Date: 20120229
  Receipt Date: 20120227
  Transmission Date: 20120608
  Serious: Yes (Hospitalization)
  Sender: FDA-Public Use
  Company Number: US-JNJFOC-20100210377

PATIENT
  Age: 21 Month
  Sex: Male

DRUGS (2)
  1. CHILDREN'S BENADRYL ALLERGY [Suspect]
     Indication: RASH
     Route: 048
     Dates: start: 20021125
  2. CHILDREN'S TYLENOL PLUS MULTI-SYMPTOM COLD [Suspect]
     Indication: NASOPHARYNGITIS
     Dosage: (5-7.5ML PER DOSE)
     Route: 048
     Dates: start: 20021123, end: 20021126

REACTIONS (2)
  - HALLUCINATION, VISUAL [None]
  - HALLUCINATION, TACTILE [None]
